FAERS Safety Report 7651597-X (Version None)
Quarter: 2011Q3

REPORT INFORMATION
  Report Type: 
  Country: None (occurrence: None)
  Receive Date: 20110802
  Receipt Date: 20110323
  Transmission Date: 20111222
  Serious: Yes (Other)
  Sender: FDA-Public Use
  Company Number: PHHY2011IT24957

PATIENT
  Sex: Male

DRUGS (9)
  1. PLAVIX [Concomitant]
     Dosage: 75 MG, UNK
  2. LASIX [Concomitant]
     Dosage: 25 MG, UNK
  3. VOLTAREN [Suspect]
     Indication: BACK PAIN
     Dosage: 1 POSOLOGIC UNIT
     Route: 030
     Dates: start: 20110319, end: 20110320
  4. ZOCOR [Concomitant]
     Dosage: UNK UKN, UNK
  5. NORVASC [Concomitant]
     Dosage: UNK UKN, UNK
  6. ASPIRIN [Concomitant]
     Dosage: 160 MG, UNK
  7. MONOKET [Concomitant]
     Dosage: 40 MG, UNK
  8. PANTOPRAZOLE SODIUM [Concomitant]
     Dosage: UNK UKN, UNK
  9. METOPROLOL TARTRATE [Concomitant]
     Dosage: UNK UKN, UNK

REACTIONS (2)
  - ULCER [None]
  - INJECTION SITE ABSCESS [None]
